FAERS Safety Report 9755249 (Version 1)
Quarter: 2013Q4

REPORT INFORMATION
  Report Type: Spontaneous
  Country: US (occurrence: US)
  Receive Date: 20131213
  Receipt Date: 20131213
  Transmission Date: 20140711
  Serious: No
  Sender: FDA-Public Use
  Company Number: US-GLAXOSMITHKLINE-A1014735A

PATIENT
  Age: 48 Year
  Sex: Female

DRUGS (1)
  1. NICODERM CQ CLEAR 14MG [Suspect]
     Indication: EX-TOBACCO USER
     Dates: start: 20130303, end: 20130305

REACTIONS (3)
  - Pain in extremity [Not Recovered/Not Resolved]
  - Expired drug administered [Not Recovered/Not Resolved]
  - Musculoskeletal pain [Not Recovered/Not Resolved]
